FAERS Safety Report 15058604 (Version 1)
Quarter: 2018Q2

REPORT INFORMATION
  Report Type: Report from Study
  Country: CO (occurrence: CO)
  Receive Date: 20180625
  Receipt Date: 20180625
  Transmission Date: 20180711
  Serious: Yes (Other)
  Sender: FDA-Public Use
  Company Number: PHHY2018CO076697

PATIENT
  Sex: Female
  Weight: 53 kg

DRUGS (1)
  1. AFINITOR [Suspect]
     Active Substance: EVEROLIMUS
     Indication: BREAST CANCER
     Dosage: 10 MG, QD
     Route: 048
     Dates: start: 20171010

REACTIONS (8)
  - Drug ineffective [Unknown]
  - Rash erythematous [Unknown]
  - Pruritus [Unknown]
  - Dry skin [Unknown]
  - Urticaria [Unknown]
  - Cough [Not Recovered/Not Resolved]
  - Bone lesion [Unknown]
  - Synovial cyst [Unknown]
